FAERS Safety Report 13190156 (Version 1)
Quarter: 2017Q1

REPORT INFORMATION
  Report Type: Spontaneous
  Country: TR (occurrence: TR)
  Receive Date: 20170206
  Receipt Date: 20170206
  Transmission Date: 20170428
  Serious: Yes (Hospitalization)
  Sender: FDA-Public Use
  Company Number: TR-MYLANLABS-2017M1006721

PATIENT

DRUGS (4)
  1. ARIPIPRAZOLE. [Suspect]
     Active Substance: ARIPIPRAZOLE
     Indication: ATTENTION DEFICIT/HYPERACTIVITY DISORDER
     Route: 065
  2. METHYLPHENIDATE. [Suspect]
     Active Substance: METHYLPHENIDATE
     Indication: ATTENTION DEFICIT/HYPERACTIVITY DISORDER
     Dosage: OSMOTIC CONTROLLED RELEASE ORAL DELIVERY SYSTEM
     Route: 048
  3. ATOMOXETINE [Suspect]
     Active Substance: ATOMOXETINE
     Indication: ATTENTION DEFICIT/HYPERACTIVITY DISORDER
     Route: 065
  4. METHYLPHENIDATE. [Suspect]
     Active Substance: METHYLPHENIDATE
     Dosage: SHORT ACTING; AT ADMISSSION AND THEN READMINISTERED AFTER ATOMOXETINE WITHDRAWAL
     Route: 065

REACTIONS (3)
  - Tic [Recovered/Resolved]
  - Weight increased [Unknown]
  - Condition aggravated [Recovered/Resolved]
